FAERS Safety Report 8481820-3 (Version None)
Quarter: 2012Q3

REPORT INFORMATION
  Report Type: 
  Country: None (occurrence: None)
  Receive Date: 20120702
  Receipt Date: 20120625
  Transmission Date: 20120928
  Serious: No
  Sender: FDA-Public Use
  Company Number: US-PFIZER INC-2012152667

PATIENT
  Sex: Female
  Weight: 112.93 kg

DRUGS (9)
  1. LYRICA [Suspect]
     Dosage: 150 MG, 2X/DAY
     Route: 048
     Dates: start: 20100101
  2. VICODIN [Concomitant]
     Dosage: UNK
  3. LYRICA [Suspect]
     Indication: MERALGIA PARAESTHETICA
     Dosage: 150 MG, 2X/DAY
     Route: 048
     Dates: start: 20070101, end: 20090101
  4. LEXAPRO [Concomitant]
     Dosage: UNK
  5. LYRICA [Suspect]
     Dosage: 150 MG, 2X/DAY
     Route: 048
     Dates: start: 20090101, end: 20100101
  6. GLEEVEC [Concomitant]
     Dosage: UNK
  7. METFORMIN [Concomitant]
     Dosage: UNK
  8. PREVACID [Concomitant]
     Dosage: UNK
  9. CLONAZEPAM [Concomitant]
     Dosage: UNK

REACTIONS (2)
  - WEIGHT DECREASED [None]
  - ASTHENIA [None]
